FAERS Safety Report 12976107 (Version 1)
Quarter: 2016Q4

REPORT INFORMATION
  Report Type: Other
  Country: GB (occurrence: IN)
  Receive Date: 20161126
  Receipt Date: 20161126
  Transmission Date: 20170207
  Serious: Yes (Other)
  Sender: FDA-Public Use
  Company Number: IN-CLARIS PHARMASERVICES-1060062

PATIENT
  Age: 14 Year
  Sex: Male

DRUGS (1)
  1. METRONIDAZOLE. [Suspect]
     Active Substance: METRONIDAZOLE
     Indication: ACUTE ABDOMEN

REACTIONS (1)
  - Encephalopathy [Recovered/Resolved]
